FAERS Safety Report 5722882-3 (Version None)
Quarter: 2008Q2

REPORT INFORMATION
  Report Type: 
  Country: None (occurrence: None)
  Receive Date: 20080425
  Receipt Date: 20080411
  Transmission Date: 20081010
  Serious: Yes (Other)
  Sender: FDA-Public Use
  Company Number: 2008S1006060

PATIENT
  Age: 58 Year
  Sex: Female
  Weight: 61.2356 kg

DRUGS (11)
  1. FENTANYL TRANSDERMAL SYSTEM [Suspect]
     Indication: ARTHRALGIA
     Dosage: 75 UG;EVERY HOUR;TRANSDERMAL
     Route: 062
     Dates: start: 20071113, end: 20080108
  2. FENTANYL TRANSDERMAL SYSTEM [Suspect]
     Indication: ARTHRALGIA
     Dosage: 75 UG;EVERY HOUR;TRANSDERMAL
     Route: 062
     Dates: start: 20080108, end: 20080110
  3. FENTANYL TRANSDERMAL SYSTEM [Suspect]
     Indication: ARTHRALGIA
     Dosage: 75 UG;EVERY HOUR;TRANSDERMAL
     Route: 062
     Dates: start: 20080110, end: 20080114
  4. HYDROCODONE BITARTRATE [Suspect]
     Indication: ARTHRALGIA
     Dosage: 7.5 MG; EVERY 4 HOURS; ORAL
     Route: 048
  5. TRAMADOL HCL [Suspect]
     Indication: ARTHRALGIA
     Dosage: 50 MG;DAILY;ORAL
     Route: 048
     Dates: end: 20080114
  6. ANTIEMETICS AND ANTINAUSEANT [Concomitant]
  7. CELEXA [Concomitant]
  8. NEXIUM [Concomitant]
  9. COZARIL [Concomitant]
  10. TRAZODONE HCL [Concomitant]
  11. CLARITIN [Concomitant]

REACTIONS (7)
  - CONFUSIONAL STATE [None]
  - CRYING [None]
  - DYSSTASIA [None]
  - NAUSEA [None]
  - PAIN [None]
  - PARANOIA [None]
  - SUICIDAL IDEATION [None]
